FAERS Safety Report 4585770-4 (Version None)
Quarter: 2005Q1

REPORT INFORMATION
  Report Type: 
  Country: None (occurrence: None)
  Receive Date: 20050128
  Receipt Date: 20050128
  Transmission Date: 20050727
  Serious: Yes (Hospitalization)
  Sender: FDA-Public Use
  Company Number: None

PATIENT
  Age: 77 Year
  Sex: Male
  Weight: 97.0698 kg

DRUGS (9)
  1. IRON DEXTRAN [Suspect]
     Indication: ANAEMIA
     Dosage: 25 MG TEST DOSE IV
     Route: 042
     Dates: start: 20041210, end: 20041210
  2. ALLOPURINOL [Concomitant]
  3. ASCORBIC ACID [Concomitant]
  4. ATENOLOL [Concomitant]
  5. TRAMADOL HCL [Concomitant]
  6. ERYTHROPIETIN [Concomitant]
  7. BISACODYL [Concomitant]
  8. IPRATROPIUM NEBULE [Concomitant]
  9. ALBUTEROL [Concomitant]

REACTIONS (2)
  - CONVULSION [None]
  - DYSPNOEA [None]
